FAERS Safety Report 7210615-3 (Version None)
Quarter: 2011Q1

REPORT INFORMATION
  Report Type: 
  Country: None (occurrence: None)
  Receive Date: 20110105
  Receipt Date: 20101222
  Transmission Date: 20110831
  Serious: Yes (Hospitalization)
  Sender: FDA-Public Use
  Company Number: CZ-JNJFOC-20110100560

PATIENT
  Age: 48 Year
  Sex: Female

DRUGS (10)
  1. ALPRAZOLAM [Concomitant]
     Indication: PRODUCT USED FOR UNKNOWN INDICATION
     Route: 065
  2. IBUPROFEN [Suspect]
  3. PAROXETINE [Suspect]
     Indication: OBSESSIVE-COMPULSIVE DISORDER
  4. ALPRAZOLAM [Concomitant]
     Route: 065
  5. IBUPROFEN [Suspect]
     Indication: HEADACHE
     Dosage: 800MG PER DAY, FOR 2 DAYS
  6. PAROXETINE [Suspect]
  7. PAROXETINE [Suspect]
     Dosage: SLOWLY INCREASED TO 60MG PER DAY
  8. IBUPROFEN [Suspect]
     Indication: PRODUCT USED FOR UNKNOWN INDICATION
  9. IBUPROFEN [Suspect]
     Dosage: 800MG PER DAY, FOR 2 DAYS
  10. PAROXETINE [Suspect]
     Dosage: 20MG PER DAY

REACTIONS (2)
  - SUBARACHNOID HAEMORRHAGE [None]
  - CEREBRAL HAEMORRHAGE [None]
